FAERS Safety Report 13740458 (Version 1)
Quarter: 2017Q3

REPORT INFORMATION
  Report Type: Spontaneous
  Country: US (occurrence: US)
  Receive Date: 20170710
  Receipt Date: 20170710
  Transmission Date: 20171127
  Serious: No
  Sender: FDA-Public Use
  Company Number: None

PATIENT
  Age: 30 Year
  Sex: Female
  Weight: 67.5 kg

DRUGS (1)
  1. BUPRENORPHINE/NALOXONE [Suspect]
     Active Substance: BUPRENORPHINE\NALOXONE
     Indication: DRUG USE DISORDER
     Dosage: ?          OTHER DOSE:MG;?
     Route: 048
     Dates: start: 20170620, end: 20170627

REACTIONS (4)
  - Nausea [None]
  - Vomiting [None]
  - Withdrawal syndrome [None]
  - Product substitution issue [None]

NARRATIVE: CASE EVENT DATE: 20170622
